FAERS Safety Report 9765564 (Version 1)
Quarter: 2013Q4

REPORT INFORMATION
  Report Type: Spontaneous
  Country: US (occurrence: US)
  Receive Date: 20131217
  Receipt Date: 20131217
  Transmission Date: 20140711
  Serious: No
  Sender: FDA-Public Use
  Company Number: US-BIOGENIDEC-2013BI112986

PATIENT
  Age: 39 Year
  Sex: Male

DRUGS (7)
  1. TECFIDERA [Suspect]
     Indication: MULTIPLE SCLEROSIS
     Route: 048
     Dates: start: 201310
  2. TECFIDERA [Suspect]
     Indication: MULTIPLE SCLEROSIS
     Route: 048
  3. LISINOPRIL [Concomitant]
  4. TRAMADOL/ACETAMINOPHEN [Concomitant]
  5. FISH OIL [Concomitant]
  6. VIT D [Concomitant]
  7. CVS VITAMIN B12 [Concomitant]

REACTIONS (3)
  - Abdominal distension [Unknown]
  - Flushing [Unknown]
  - Diarrhoea [Unknown]
